FAERS Safety Report 5932096-X (Version None)
Quarter: 2008Q4

REPORT INFORMATION
  Report Type: 
  Country: None (occurrence: None)
  Receive Date: 20081027
  Receipt Date: 20081023
  Transmission Date: 20090506
  Serious: Yes (Other)
  Sender: FDA-Public Use
  Company Number: AU-ALLERGAN-0813429US

PATIENT
  Sex: Female

DRUGS (3)
  1. LUMIGAN [Suspect]
     Indication: DRUG USE FOR UNKNOWN INDICATION
     Dosage: 1 GTT, QPM
     Route: 047
     Dates: start: 20081005
  2. ASTHMA INHALER [Concomitant]
     Indication: ASTHMA
     Dosage: UNK, PRN
     Route: 055
  3. DUCENE [Concomitant]
     Indication: ANXIETY
     Dosage: 1 TABLET, ORAL, P.M.
     Route: 048

REACTIONS (4)
  - DYSPNOEA [None]
  - FATIGUE [None]
  - OCULAR HYPERAEMIA [None]
  - SLEEP DISORDER [None]
